FAERS Safety Report 16794882 (Version 1)
Quarter: 2019Q3

REPORT INFORMATION
  Report Type: Spontaneous
  Country: US (occurrence: US)
  Receive Date: 20190720
  Receipt Date: 20190720
  Transmission Date: 20191005
  Serious: Yes (Hospitalization)
  Sender: FDA-Public Use
  Company Number: None

PATIENT
  Age: 61 Year
  Sex: Male
  Weight: 80.1 kg

DRUGS (2)
  1. EVEROLIMUS (RAD-001) [Suspect]
     Active Substance: EVEROLIMUS
     Dates: end: 20190715
  2. NEXAVAR [Suspect]
     Active Substance: SORAFENIB
     Dates: end: 20190715

REACTIONS (2)
  - Infection [None]
  - Post procedural complication [None]

NARRATIVE: CASE EVENT DATE: 20190715
